FAERS Safety Report 4479983-X (Version None)
Quarter: 2004Q3

REPORT INFORMATION
  Report Type: 
  Country: None (occurrence: None)
  Receive Date: 20040930
  Receipt Date: 20040916
  Transmission Date: 20050211
  Serious: No
  Sender: FDA-Public Use
  Company Number: 200410313BBE

PATIENT
  Sex: Female
  Weight: 36.2878 kg

DRUGS (3)
  1. GAMUNEX [Suspect]
     Indication: IMMUNODEFICIENCY
     Dosage: 16 G, Q1MON, INTRAVENOUS
     Route: 042
     Dates: start: 20031124
  2. TYLENOL [Concomitant]
  3. BENADRYL COMPLEX [Concomitant]

REACTIONS (1)
  - COELIAC DISEASE [None]
